FAERS Safety Report 9631749 (Version 1)
Quarter: 2013Q4

REPORT INFORMATION
  Report Type: Report from Study
  Country: RS (occurrence: RS)
  Receive Date: 20131018
  Receipt Date: 20131018
  Transmission Date: 20140711
  Serious: Yes (Death)
  Sender: FDA-Public Use
  Company Number: RS-PFIZER INC-2013295011

PATIENT
  Age: 50 Year
  Sex: Male

DRUGS (6)
  1. RISPOLEPT [Suspect]
     Indication: PSYCHOTIC DISORDER
     Dosage: 2 MG, DAILY
     Route: 048
  2. DIAZEPAM [Concomitant]
     Indication: ANXIOLYTIC THERAPY
     Dosage: 30 MG, UNK
     Route: 030
  3. CEFTRIAXONE [Concomitant]
     Indication: ANTIBIOTIC THERAPY
     Dosage: 2 G/DAY I.V.
     Route: 042
  4. CAPTOPRIL [Concomitant]
     Indication: HYPERTENSION
     Dosage: 25 MG, UNK
     Route: 048
  5. LISINOPRIL [Concomitant]
     Indication: HYPERTENSION
     Dosage: 10 MG PER OS P.D.
     Route: 048
  6. HALOPERIDOL [Suspect]
     Indication: PSYCHOTIC DISORDER
     Dosage: 10 MG, DAILY
     Route: 030

REACTIONS (1)
  - Pulmonary embolism [Fatal]
